FAERS Safety Report 23749280 (Version 1)
Quarter: 2024Q2

REPORT INFORMATION
  Report Type: Spontaneous
  Country: CA (occurrence: CA)
  Receive Date: 20240416
  Receipt Date: 20240416
  Transmission Date: 20240716
  Serious: Yes (Death)
  Sender: FDA-Public Use
  Company Number: CA-TEVA-VS-3181862

PATIENT
  Age: 86 Year
  Sex: Male

DRUGS (1)
  1. AMIODARONE [Suspect]
     Active Substance: AMIODARONE
     Indication: Product used for unknown indication
     Route: 065

REACTIONS (6)
  - Arrhythmia [Fatal]
  - Cardiac arrest [Fatal]
  - Incorrect route of product administration [Fatal]
  - Product administration error [Fatal]
  - Incorrect drug administration rate [Fatal]
  - Dizziness [Fatal]
